FAERS Safety Report 7419898-8 (Version None)
Quarter: 2011Q2

REPORT INFORMATION
  Report Type: 
  Country: None (occurrence: None)
  Receive Date: 20110413
  Receipt Date: 20110413
  Transmission Date: 20111010
  Serious: No
  Sender: FDA-Public Use
  Company Number: None

PATIENT
  Age: 62 Year
  Sex: Female
  Weight: 80.2867 kg

DRUGS (1)
  1. PACLITAXEL [Suspect]
     Indication: NON-SMALL CELL LUNG CANCER
     Dosage: 225 MG Q 3WKS IV
     Route: 042
     Dates: start: 20110411

REACTIONS (4)
  - BURNING SENSATION [None]
  - BLOOD PRESSURE INCREASED [None]
  - SWELLING [None]
  - ERYTHEMA [None]
